FAERS Safety Report 23775662 (Version 2)
Quarter: 2024Q2

REPORT INFORMATION
  Report Type: Report from Study
  Country: JP (occurrence: JP)
  Receive Date: 20240423
  Receipt Date: 20240501
  Transmission Date: 20240716
  Serious: Yes (Hospitalization)
  Sender: FDA-Public Use
  Company Number: JP-002147023-NVSJ2024JP004985

PATIENT
  Age: 84 Year
  Sex: Female

DRUGS (1)
  1. LEQVIO [Suspect]
     Active Substance: INCLISIRAN SODIUM
     Indication: Hypercholesterolaemia
     Dosage: UNK
     Route: 058
     Dates: start: 20240409

REACTIONS (7)
  - Brain stem infarction [Not Recovered/Not Resolved]
  - Feeling abnormal [Unknown]
  - Motor dysfunction [Unknown]
  - Dizziness [Unknown]
  - Carotid artery stenosis [Unknown]
  - Fall [Unknown]
  - Chest pain [Unknown]

NARRATIVE: CASE EVENT DATE: 20240418
